FAERS Safety Report 5800821-4 (Version None)
Quarter: 2008Q3

REPORT INFORMATION
  Report Type: 
  Country: None (occurrence: None)
  Receive Date: 20080703
  Receipt Date: 20080619
  Transmission Date: 20090109
  Serious: Yes (Death, Hospitalization, Other)
  Sender: FDA-Public Use
  Company Number: DE-MERCK-0806DEU00076

PATIENT
  Age: 66 Year
  Sex: Male
  Weight: 80 kg

DRUGS (91)
  1. PRIMAXIN [Suspect]
     Route: 042
     Dates: start: 20070319, end: 20070323
  2. PRIMAXIN [Suspect]
     Route: 042
     Dates: start: 20070324, end: 20070324
  3. PRIMAXIN [Suspect]
     Route: 042
     Dates: start: 20070325, end: 20070325
  4. PRIMAXIN [Suspect]
     Route: 042
     Dates: start: 20070326, end: 20070326
  5. AQUAPHOR TABLETS [Suspect]
     Route: 048
     Dates: start: 20070319, end: 20070319
  6. AQUAPHOR TABLETS [Suspect]
     Route: 048
     Dates: start: 20070321, end: 20070323
  7. TRAMAL [Suspect]
     Route: 042
     Dates: start: 20070318, end: 20070318
  8. TRAMAL [Suspect]
     Route: 042
     Dates: start: 20070321, end: 20070321
  9. TRAMAL [Suspect]
     Route: 042
     Dates: start: 20070322, end: 20070322
  10. TRAMAL [Suspect]
     Route: 042
     Dates: start: 20070323, end: 20070323
  11. TRAMAL [Suspect]
     Route: 042
     Dates: start: 20070324, end: 20070324
  12. TRAMAL [Suspect]
     Route: 042
     Dates: start: 20070325, end: 20070325
  13. TRAMAL [Suspect]
     Route: 042
     Dates: start: 20070326, end: 20070326
  14. FURESIS [Suspect]
     Route: 042
     Dates: start: 20070318, end: 20070318
  15. FURESIS [Suspect]
     Route: 042
     Dates: start: 20070319, end: 20070319
  16. FURESIS [Suspect]
     Route: 042
     Dates: start: 20070320, end: 20070320
  17. FURESIS [Suspect]
     Route: 042
     Dates: start: 20070321, end: 20070321
  18. FURESIS [Suspect]
     Route: 042
     Dates: start: 20070322, end: 20070322
  19. FURESIS [Suspect]
     Route: 042
     Dates: start: 20070323, end: 20070323
  20. PAMBA [Concomitant]
     Route: 042
     Dates: start: 20070318, end: 20070318
  21. SODIUM BICARBONATE [Concomitant]
     Route: 042
     Dates: start: 20070318, end: 20070318
  22. SODIUM BICARBONATE [Concomitant]
     Route: 042
     Dates: start: 20070324, end: 20070324
  23. SODIUM BICARBONATE [Concomitant]
     Route: 042
     Dates: start: 20070325, end: 20070325
  24. MSI [Concomitant]
     Route: 042
     Dates: start: 20070318, end: 20070318
  25. MSI [Concomitant]
     Route: 042
     Dates: start: 20070323, end: 20070324
  26. PANCURONIUM BROMIDE [Concomitant]
     Route: 042
     Dates: start: 20070318, end: 20070318
  27. ACTRAPID [Concomitant]
     Route: 042
     Dates: start: 20070318, end: 20070318
  28. PROPOFOL [Concomitant]
     Route: 042
     Dates: start: 20070318, end: 20070318
  29. PROPOFOL [Concomitant]
     Route: 042
     Dates: start: 20070324, end: 20070324
  30. PROPOFOL [Concomitant]
     Route: 042
     Dates: start: 20070325, end: 20070325
  31. DIPYRONE [Concomitant]
     Route: 042
     Dates: start: 20070318, end: 20070318
  32. DIPYRONE [Concomitant]
     Route: 042
     Dates: start: 20070321, end: 20070321
  33. DIPYRONE [Concomitant]
     Route: 042
     Dates: start: 20070322, end: 20070322
  34. DIPYRONE [Concomitant]
     Route: 042
     Dates: start: 20070323, end: 20070323
  35. DIPYRONE [Concomitant]
     Route: 042
     Dates: start: 20070324, end: 20070324
  36. DIPYRONE [Concomitant]
     Route: 042
     Dates: start: 20070325, end: 20070325
  37. DIPYRONE [Concomitant]
     Route: 042
     Dates: start: 20070326, end: 20070326
  38. DROPERIDOL [Concomitant]
     Route: 042
     Dates: start: 20070318, end: 20070318
  39. DROPERIDOL [Concomitant]
     Route: 042
     Dates: start: 20070321, end: 20070321
  40. DROPERIDOL [Concomitant]
     Route: 042
     Dates: start: 20070322, end: 20070322
  41. DROPERIDOL [Concomitant]
     Route: 042
     Dates: start: 20070323, end: 20070323
  42. DROPERIDOL [Concomitant]
     Route: 042
     Dates: start: 20070324, end: 20070324
  43. DROPERIDOL [Concomitant]
     Route: 042
     Dates: start: 20070325, end: 20070325
  44. DROPERIDOL [Concomitant]
     Route: 042
     Dates: start: 20070326, end: 20070326
  45. NITROGLYCERIN [Concomitant]
     Route: 042
     Dates: start: 20070318, end: 20070318
  46. NITROGLYCERIN [Concomitant]
     Route: 042
     Dates: start: 20070324, end: 20070324
  47. METOCLOPRAMIDE [Concomitant]
     Route: 042
     Dates: start: 20070318, end: 20070318
  48. METOCLOPRAMIDE [Concomitant]
     Route: 042
     Dates: start: 20070319, end: 20070322
  49. METOCLOPRAMIDE [Concomitant]
     Route: 042
     Dates: start: 20070323, end: 20070323
  50. METOCLOPRAMIDE [Concomitant]
     Route: 042
     Dates: start: 20070324, end: 20070324
  51. METOCLOPRAMIDE [Concomitant]
     Route: 042
     Dates: start: 20070325, end: 20070325
  52. PANTOPRAZOLE SODIUM [Concomitant]
     Route: 042
     Dates: start: 20070318, end: 20070318
  53. FENTANYL [Concomitant]
     Route: 042
     Dates: start: 20070318, end: 20070318
  54. FENTANYL [Concomitant]
     Route: 042
     Dates: start: 20070319, end: 20070320
  55. FENTANYL [Concomitant]
     Route: 042
     Dates: start: 20070321, end: 20070321
  56. NOREPINEPHRINE HYDROCHLORIDE [Concomitant]
     Route: 042
     Dates: start: 20070318, end: 20070318
  57. NOREPINEPHRINE HYDROCHLORIDE [Concomitant]
     Route: 042
     Dates: start: 20070319, end: 20070319
  58. NOREPINEPHRINE HYDROCHLORIDE [Concomitant]
     Route: 042
     Dates: start: 20070320, end: 20070320
  59. NOREPINEPHRINE HYDROCHLORIDE [Concomitant]
     Route: 042
     Dates: start: 20070321, end: 20070321
  60. NOREPINEPHRINE HYDROCHLORIDE [Concomitant]
     Route: 042
     Dates: start: 20070322, end: 20070322
  61. NOREPINEPHRINE HYDROCHLORIDE [Concomitant]
     Route: 042
     Dates: start: 20070324, end: 20070324
  62. MIDAZOLAM HCL [Concomitant]
     Route: 042
     Dates: start: 20070318, end: 20070318
  63. MIDAZOLAM HCL [Concomitant]
     Route: 042
     Dates: start: 20070319, end: 20070320
  64. MIDAZOLAM HCL [Concomitant]
     Route: 042
     Dates: start: 20070321, end: 20070321
  65. MIDAZOLAM HCL [Concomitant]
     Route: 042
     Dates: start: 20070325, end: 20070325
  66. ENOXAPARIN SODIUM [Concomitant]
     Route: 058
     Dates: start: 20070319, end: 20070319
  67. ENOXAPARIN SODIUM [Concomitant]
     Route: 058
     Dates: start: 20070320, end: 20070322
  68. ENOXAPARIN SODIUM [Concomitant]
     Route: 058
     Dates: start: 20070324, end: 20070324
  69. OMEPRAZOLE [Concomitant]
     Route: 042
     Dates: start: 20070319, end: 20070319
  70. OMEPRAZOLE [Concomitant]
     Route: 042
     Dates: start: 20070320, end: 20070321
  71. OMEPRAZOLE [Concomitant]
     Route: 042
     Dates: start: 20070322, end: 20070322
  72. OMEPRAZOLE [Concomitant]
     Route: 042
     Dates: start: 20070326, end: 20070326
  73. NITROGLYCERIN [Concomitant]
     Dates: start: 20070318, end: 20070318
  74. ETOMIDATE [Concomitant]
     Route: 042
     Dates: start: 20070318, end: 20070318
  75. SUFENTANIL [Concomitant]
     Route: 042
     Dates: start: 20070318, end: 20070318
  76. ROCURONIUM BROMIDE [Concomitant]
     Route: 042
     Dates: start: 20070318, end: 20070318
  77. ROCURONIUM BROMIDE [Concomitant]
     Route: 042
     Dates: start: 20070320, end: 20070320
  78. SEVOFLURANE [Concomitant]
     Dates: start: 20070318, end: 20070318
  79. SODIUM BICARBONATE [Concomitant]
     Route: 042
     Dates: start: 20070318, end: 20070318
  80. BASOCEF [Concomitant]
     Route: 042
     Dates: start: 20070318, end: 20070318
  81. PLATELET CONCENTRATE [Concomitant]
     Route: 042
     Dates: start: 20070318, end: 20070318
  82. BLOOD, PLASMA [Concomitant]
     Route: 042
     Dates: start: 20070318, end: 20070318
  83. BLOOD CELLS, RED [Concomitant]
     Route: 042
     Dates: start: 20070318, end: 20070318
  84. MIDAZOLAM HCL [Concomitant]
     Route: 042
     Dates: start: 20070320, end: 20070320
  85. ISOFLURANE [Concomitant]
     Dates: start: 20070320, end: 20070320
  86. NOREPINEPHRINE HYDROCHLORIDE [Concomitant]
     Route: 042
     Dates: start: 20070320, end: 20070320
  87. PLAVIX [Concomitant]
     Route: 048
     Dates: start: 20060901, end: 20070317
  88. ASPIRIN [Concomitant]
     Route: 048
     Dates: start: 20061201, end: 20070317
  89. ASPIRIN [Concomitant]
     Route: 048
     Dates: start: 20070325, end: 20070326
  90. METOPROLOL [Concomitant]
     Route: 048
     Dates: start: 19770101, end: 20070301
  91. SUCCINYLCHOLINE CHLORIDE [Concomitant]
     Route: 042
     Dates: start: 20070318, end: 20070318

REACTIONS (16)
  - BRONCHOPNEUMONIA [None]
  - CARDIAC FAILURE [None]
  - CHOLANGITIS [None]
  - CHOLELITHIASIS [None]
  - CRITICAL ILLNESS POLYNEUROPATHY [None]
  - DIVERTICULUM INTESTINAL [None]
  - ENDOCARDITIS [None]
  - GASTRITIS [None]
  - HEPATITIS ACUTE [None]
  - JAUNDICE [None]
  - NEPHROGENIC ANAEMIA [None]
  - OESOPHAGEAL CANDIDIASIS [None]
  - RENAL CYST [None]
  - RENAL FAILURE [None]
  - SEPSIS [None]
  - URINARY TRACT INFECTION [None]
